FAERS Safety Report 5337772-8 (Version None)
Quarter: 2007Q1

REPORT INFORMATION
  Report Type: 
  Country: None (occurrence: None)
  Receive Date: 20070308
  Receipt Date: 20061201
  Transmission Date: 20070707
  Serious: No
  Sender: FDA-Public Use
  Company Number: 2006-BP-13995BP

PATIENT
  Age: 75 Year
  Sex: Female

DRUGS (7)
  1. SPIRIVA [Suspect]
     Indication: CHRONIC OBSTRUCTIVE PULMONARY DISEASE
     Dosage: 18 MCG (18 MCG, ONE CAPSULE DAILY), IH
     Route: 055
     Dates: start: 20060601
  2. TRIMETHOPRIM [Concomitant]
  3. ATENOLOL [Concomitant]
  4. SYNTHROID [Concomitant]
  5. NEXIUM [Concomitant]
  6. ZOCOR [Concomitant]
  7. BONIVA (IBANDRONATE SODIUM) [Concomitant]

REACTIONS (3)
  - COUGH [None]
  - POLLAKIURIA [None]
  - URINARY TRACT INFECTION [None]
